FAERS Safety Report 6257637-7 (Version None)
Quarter: 2009Q3

REPORT INFORMATION
  Report Type: 
  Country: None (occurrence: None)
  Receive Date: 20090706
  Receipt Date: 20090622
  Transmission Date: 20100115
  Serious: Yes (Other)
  Sender: FDA-Public Use
  Company Number: US-AVENTIS-200915507US

PATIENT
  Age: 11 Year
  Sex: Female

DRUGS (1)
  1. HYDROCORTISONE [Suspect]
     Dosage: DOSE: UNK

REACTIONS (2)
  - PSYCHOTIC DISORDER [None]
  - SUICIDAL IDEATION [None]
